FAERS Safety Report 9069025 (Version 2)
Quarter: 2013Q1

REPORT INFORMATION
  Report Type: Spontaneous
  Country: US (occurrence: US)
  Receive Date: 20130215
  Receipt Date: 20130218
  Transmission Date: 20140127
  Serious: No
  Sender: FDA-Public Use
  Company Number: US-PFIZER INC-2013055506

PATIENT
  Age: 15 Year
  Sex: Male
  Weight: 76.19 kg

DRUGS (5)
  1. GEODON [Suspect]
     Indication: AUTISM
     Dosage: 160 MG, 4X/DAY (40 MG IN MORNING, 20 MG IN AFTERNOON THEN 20 MG IN EVENING AND 80 MG AT BEDTIME)
     Dates: start: 2007
  2. GEODON [Suspect]
     Indication: BIPOLAR DISORDER
  3. LITHIUM CARBONATE [Concomitant]
     Indication: AUTISM
     Dosage: 1050 MG, 2X/DAY (450 MG IN THE MORNING AND 600 MG AT BED TIME)
  4. LITHIUM CARBONATE [Concomitant]
     Indication: BIPOLAR DISORDER
  5. LITHIUM CARBONATE [Concomitant]
     Indication: SELF INJURIOUS BEHAVIOUR

REACTIONS (1)
  - Pyrexia [Not Recovered/Not Resolved]
